FAERS Safety Report 4746693-0 (Version None)
Quarter: 2005Q3

REPORT INFORMATION
  Report Type: 
  Country: None (occurrence: None)
  Receive Date: 20050815
  Receipt Date: 20050719
  Transmission Date: 20060218
  Serious: Yes (Hospitalization)
  Sender: FDA-Public Use
  Company Number: 2005BI012337

PATIENT
  Age: 54 Year
  Sex: Female
  Weight: 66.2252 kg

DRUGS (11)
  1. AVONEX [Suspect]
     Indication: RELAPSING-REMITTING MULTIPLE SCLEROSIS
     Dosage: 30 UG; QW; IM
     Route: 030
     Dates: start: 20010101
  2. MULTI-VITAMINS [Concomitant]
  3. CALCIUM GLUCONATE [Concomitant]
  4. FAMOTIDINE [Concomitant]
  5. MODAFINIL [Concomitant]
  6. ENULOSE [Concomitant]
  7. OXYBUTYNIN [Concomitant]
  8. ROFECOXIB [Concomitant]
  9. NAPROXEN [Concomitant]
  10. DARVOCET-N 100 [Concomitant]
  11. SYNTHROID [Concomitant]

REACTIONS (10)
  - BACK PAIN [None]
  - BRADYCARDIA [None]
  - CARDIAC DISORDER [None]
  - CHEST DISCOMFORT [None]
  - CHEST PAIN [None]
  - DYSPNOEA [None]
  - HYPERHIDROSIS [None]
  - HYPOTENSION [None]
  - PAIN IN EXTREMITY [None]
  - PARAESTHESIA [None]
